FAERS Safety Report 5923056-3 (Version None)
Quarter: 2008Q4

REPORT INFORMATION
  Report Type: 
  Country: None (occurrence: None)
  Receive Date: 20081018
  Receipt Date: 20081006
  Transmission Date: 20090506
  Serious: Yes (Other)
  Sender: FDA-Public Use
  Company Number: US-PFIZER INC-2008084118

PATIENT
  Sex: Female
  Weight: 134.09 kg

DRUGS (8)
  1. TIKOSYN [Suspect]
     Indication: ATRIAL FIBRILLATION
     Dates: start: 20060301
  2. GABAPENTIN [Concomitant]
  3. CELEXA [Concomitant]
  4. WARFARIN SODIUM [Concomitant]
  5. AVAPRO [Concomitant]
  6. VALTREX [Concomitant]
  7. LASIX [Concomitant]
  8. ZOCOR [Concomitant]

REACTIONS (2)
  - NEPHROLITHIASIS [None]
  - URINARY TRACT INFECTION [None]
